FAERS Safety Report 7404457-3 (Version None)
Quarter: 2011Q2

REPORT INFORMATION
  Report Type: 
  Country: None (occurrence: None)
  Receive Date: 20110408
  Receipt Date: 20110330
  Transmission Date: 20111010
  Serious: Yes (Other)
  Sender: FDA-Public Use
  Company Number: FI-GENENTECH-303725

PATIENT
  Sex: Female

DRUGS (8)
  1. YASMIN [Concomitant]
     Indication: PRODUCT USED FOR UNKNOWN INDICATION
     Dosage: UNK
     Route: 048
  2. MABTHERA [Suspect]
     Indication: RHEUMATOID ARTHRITIS
     Dosage: 1300 MG, UNK
     Route: 042
     Dates: start: 20070101
  3. MABTHERA [Suspect]
     Dosage: 1600 MG, UNK
     Route: 042
     Dates: start: 20080514
  4. MABTHERA [Suspect]
     Dosage: 1600 MG, UNK
     Route: 042
     Dates: start: 20080528
  5. MABTHERA [Suspect]
     Dosage: 800 MG, UNK
     Route: 042
     Dates: start: 20100519
  6. MABTHERA [Suspect]
     Dosage: 800 MG, UNK
     Route: 042
     Dates: start: 20100505, end: 20100505
  7. HYDROCORTISONE [Concomitant]
     Indication: PRODUCT USED FOR UNKNOWN INDICATION
     Dosage: UNK
     Route: 048
     Dates: end: 20040301
  8. HYDROCORTISONE [Concomitant]
     Dosage: UNK
     Route: 048
     Dates: start: 20040301

REACTIONS (2)
  - ABORTION INDUCED [None]
  - PREGNANCY [None]
